FAERS Safety Report 5587365-2 (Version None)
Quarter: 2007Q4

REPORT INFORMATION
  Report Type: 
  Country: None (occurrence: None)
  Receive Date: 20071207
  Receipt Date: 20070619
  Transmission Date: 20080405
  Serious: Yes (Other)
  Sender: FDA-Public Use
  Company Number: 2007050432

PATIENT
  Age: 35 Year
  Sex: Female
  Weight: 95.45 kg

DRUGS (1)
  1. VIAGRA [Suspect]
     Indication: ERECTILE DYSFUNCTION
     Dates: start: 20070401

REACTIONS (2)
  - EJACULATION DISORDER [None]
  - ERECTION INCREASED [None]
